FAERS Safety Report 6657848-2 (Version None)
Quarter: 2010Q1

REPORT INFORMATION
  Report Type: 
  Country: None (occurrence: None)
  Receive Date: 20100330
  Receipt Date: 20100326
  Transmission Date: 20100710
  Serious: Yes (Death)
  Sender: FDA-Public Use
  Company Number: JP-SANOFI-AVENTIS-2009SA010226

PATIENT
  Age: 70 Year
  Sex: Male
  Weight: 57 kg

DRUGS (3)
  1. PLAVIX [Suspect]
     Indication: LACUNAR INFARCTION
     Route: 048
     Dates: start: 20070219, end: 20070902
  2. CILOSTAZOL [Suspect]
     Route: 048
     Dates: start: 20070219, end: 20070411
  3. CILOSTAZOL [Suspect]
     Route: 048
     Dates: start: 20070412, end: 20070902

REACTIONS (2)
  - BRAIN CONTUSION [None]
  - SUBARACHNOID HAEMORRHAGE [None]
